FAERS Safety Report 22529947 (Version 1)
Quarter: 2023Q2

REPORT INFORMATION
  Report Type: Spontaneous
  Country: US (occurrence: US)
  Receive Date: 20230607
  Receipt Date: 20230607
  Transmission Date: 20230722
  Serious: No
  Sender: FDA-Public Use
  Company Number: US-INCYTE CORPORATION-2023IN004835

PATIENT

DRUGS (2)
  1. OPZELURA [Suspect]
     Active Substance: RUXOLITINIB PHOSPHATE
     Indication: Vitiligo
     Dosage: UNK, QD FOR A WEEK
     Route: 065
     Dates: start: 20230222
  2. OPZELURA [Suspect]
     Active Substance: RUXOLITINIB PHOSPHATE
     Indication: Dermatitis atopic

REACTIONS (3)
  - Skin hyperpigmentation [Not Recovered/Not Resolved]
  - Chloasma [Unknown]
  - Condition aggravated [Not Recovered/Not Resolved]
